FAERS Safety Report 9443466 (Version 1)
Quarter: 2013Q3

REPORT INFORMATION
  Report Type: Report from Study
  Country: US (occurrence: US)
  Receive Date: 20130806
  Receipt Date: 20130806
  Transmission Date: 20140515
  Serious: Yes (Hospitalization)
  Sender: FDA-Public Use
  Company Number: US-ELI_LILLY_AND_COMPANY-US201308001823

PATIENT
  Age: 55 Year
  Sex: Female

DRUGS (12)
  1. GEMCITABINE HYDROCHLORIDE [Suspect]
     Indication: LYMPHOMA
     Dosage: 960 MG, UNK
     Route: 042
     Dates: start: 20130403
  2. GEMCITABINE HYDROCHLORIDE [Suspect]
     Indication: NEOPLASM
  3. OTHER PHARMA COMPANY INV DRUG [Suspect]
     Indication: LYMPHOMA
     Dosage: 80 MG, QD
     Route: 048
     Dates: start: 20130327
  4. OTHER PHARMA COMPANY INV DRUG [Suspect]
     Indication: NEOPLASM
  5. CLARITIN [Concomitant]
     Indication: SEASONAL ALLERGY
     Dosage: 10 MG, UNK
     Route: 048
     Dates: start: 2009
  6. IBUPROFEN [Concomitant]
     Indication: ARTHRALGIA
     Dosage: 400 MG, UNK
     Route: 048
     Dates: start: 2011
  7. EFFEXOR [Concomitant]
     Indication: DEPRESSION
     Dosage: 37.5 MG, UNK
     Route: 048
     Dates: start: 2011
  8. COMPAZINE [Concomitant]
     Indication: NAUSEA
     Dosage: 10 MG, UNK
     Dates: start: 20130327
  9. COMPAZINE [Concomitant]
     Indication: VOMITING
  10. LORTAB [Concomitant]
     Indication: MUSCULOSKELETAL CHEST PAIN
     Dosage: 1 DF, UNK
     Route: 048
     Dates: start: 20130408
  11. LIDEX-E [Concomitant]
     Indication: RASH
     Dosage: 1 DF, UNK
     Route: 061
     Dates: start: 20130508
  12. OLUX [Concomitant]
     Indication: RASH
     Dosage: 1 DF, UNK
     Route: 061
     Dates: start: 20130508

REACTIONS (1)
  - Gastroenteritis [Recovered/Resolved]
